FAERS Safety Report 25395927 (Version 1)
Quarter: 2025Q2

REPORT INFORMATION
  Report Type: Spontaneous
  Country: JP (occurrence: JP)
  Receive Date: 20250604
  Receipt Date: 20250604
  Transmission Date: 20250716
  Serious: Yes (Hospitalization, Other)
  Sender: LEADING PHARMA
  Company Number: JP-LEADINGPHARMA-JP-2025LEALIT00106

PATIENT
  Sex: Female
  Weight: 51 kg

DRUGS (23)
  1. FUROSEMIDE [Suspect]
     Active Substance: FUROSEMIDE
     Indication: Device related infection
     Route: 065
  2. FUROSEMIDE [Suspect]
     Active Substance: FUROSEMIDE
     Indication: Haematological infection
  3. FUROSEMIDE [Suspect]
     Active Substance: FUROSEMIDE
     Indication: Haematological infection
  4. FUROSEMIDE [Suspect]
     Active Substance: FUROSEMIDE
     Indication: Haematological infection
  5. FUROSEMIDE [Suspect]
     Active Substance: FUROSEMIDE
     Indication: Haematological infection
  6. FUROSEMIDE [Suspect]
     Active Substance: FUROSEMIDE
     Indication: Haematological infection
  7. FUROSEMIDE [Suspect]
     Active Substance: FUROSEMIDE
     Indication: Staphylococcal infection
  8. VANCOMYCIN [Suspect]
     Active Substance: VANCOMYCIN
     Indication: Device related infection
     Route: 065
  9. VANCOMYCIN [Suspect]
     Active Substance: VANCOMYCIN
     Indication: Haematological infection
  10. VANCOMYCIN [Suspect]
     Active Substance: VANCOMYCIN
     Indication: Haematological infection
  11. VANCOMYCIN [Suspect]
     Active Substance: VANCOMYCIN
     Indication: Haematological infection
  12. VANCOMYCIN [Suspect]
     Active Substance: VANCOMYCIN
     Indication: Haematological infection
  13. VANCOMYCIN [Suspect]
     Active Substance: VANCOMYCIN
     Indication: Haematological infection
  14. VANCOMYCIN [Suspect]
     Active Substance: VANCOMYCIN
     Indication: Staphylococcal infection
  15. NOREPINEPHRINE [Suspect]
     Active Substance: NOREPINEPHRINE
     Indication: Device related infection
     Route: 065
  16. NOREPINEPHRINE [Suspect]
     Active Substance: NOREPINEPHRINE
     Indication: Haematological infection
  17. NOREPINEPHRINE [Suspect]
     Active Substance: NOREPINEPHRINE
     Indication: Haematological infection
  18. NOREPINEPHRINE [Suspect]
     Active Substance: NOREPINEPHRINE
     Indication: Haematological infection
  19. NOREPINEPHRINE [Suspect]
     Active Substance: NOREPINEPHRINE
     Indication: Haematological infection
  20. NOREPINEPHRINE [Suspect]
     Active Substance: NOREPINEPHRINE
     Indication: Haematological infection
  21. NOREPINEPHRINE [Suspect]
     Active Substance: NOREPINEPHRINE
     Indication: Staphylococcal infection
  22. SODIUM CHLORIDE [Concomitant]
     Active Substance: SODIUM CHLORIDE
     Route: 065
  23. SODIUM CHLORIDE [Concomitant]
     Active Substance: SODIUM CHLORIDE

REACTIONS (3)
  - Nephropathy toxic [Unknown]
  - Acute kidney injury [Unknown]
  - Product use in unapproved indication [Unknown]
